FAERS Safety Report 10289986 (Version 1)
Quarter: 2014Q3

REPORT INFORMATION
  Report Type: Spontaneous
  Country: US (occurrence: None)
  Receive Date: 20140707
  Receipt Date: 20140707
  Transmission Date: 20150326
  Serious: Yes (Death, Hospitalization)
  Sender: FDA-Public Use
  Company Number: None

PATIENT
  Age: 18 Year
  Sex: Male
  Weight: 70.3 kg

DRUGS (4)
  1. PREDNISONE. [Suspect]
     Active Substance: PREDNISONE
     Dosage: TOTAL DOSE ADMINISTERED
     Dates: end: 20140531
  2. MERCAPTOPURINE. [Suspect]
     Active Substance: MERCAPTOPURINE
     Dosage: TOTAL DOSE ADMINISTERED
     Dates: end: 20140604
  3. METHOTREXATE [Suspect]
     Active Substance: METHOTREXATE
     Dosage: TOTAL DOSE ADMINISTERED
     Dates: end: 20140604
  4. VINCRISTINE SULFATE. [Suspect]
     Active Substance: VINCRISTINE SULFATE
     Dosage: TOTAL DOSE ADMINISTERED
     Dates: end: 20140527

REACTIONS (13)
  - Continuous haemodiafiltration [None]
  - Dialysis [None]
  - Syncope [None]
  - Coagulopathy [None]
  - Blood lactic acid increased [None]
  - Pancreatitis [None]
  - Renal failure [None]
  - Acute respiratory distress syndrome [None]
  - Disseminated intravascular coagulation [None]
  - Encephalopathy [None]
  - Cardiac arrest [None]
  - Hepatic failure [None]
  - Shock [None]

NARRATIVE: CASE EVENT DATE: 20140604
